FAERS Safety Report 4524476-4 (Version None)
Quarter: 2004Q4

REPORT INFORMATION
  Report Type: 
  Country: None (occurrence: None)
  Receive Date: 20041117
  Receipt Date: 20031118
  Transmission Date: 20050328
  Serious: Yes (Hospitalization)
  Sender: FDA-Public Use
  Company Number: US-JNJFOC-20030900748

PATIENT
  Age: 64 Year
  Sex: Male

DRUGS (5)
  1. LEVAQUIN [Suspect]
     Indication: DRUG USE FOR UNKNOWN INDICATION
     Dosage: 250 MG, 2 IN 1 DAY, ORAL
     Route: 048
  2. COMBIVENT [Concomitant]
  3. FORADIL [Concomitant]
  4. HUMIBID (GUAIFENESIN) [Concomitant]
  5. ASPIRIN [Concomitant]

REACTIONS (2)
  - PNEUMONITIS [None]
  - THROMBOCYTOPENIA [None]
